FAERS Safety Report 7788229-6 (Version None)
Quarter: 2011Q3

REPORT INFORMATION
  Report Type: 
  Country: None (occurrence: None)
  Receive Date: 20110929
  Receipt Date: 20110929
  Transmission Date: 20111222
  Serious: No
  Sender: FDA-Public Use
  Company Number: None

PATIENT
  Sex: Female

DRUGS (1)
  1. ENBREL [Suspect]
     Indication: RHEUMATOID ARTHRITIS
     Dosage: 50MG QW SQ
     Route: 058
     Dates: start: 20110728

REACTIONS (6)
  - PRURITUS [None]
  - DISEASE RECURRENCE [None]
  - ERYTHEMA [None]
  - BLOOD GLUCOSE INCREASED [None]
  - SWELLING [None]
  - PSORIASIS [None]
